FAERS Safety Report 9396612 (Version 3)
Quarter: 2013Q3

REPORT INFORMATION
  Report Type: Spontaneous
  Country: US (occurrence: US)
  Receive Date: 20130711
  Receipt Date: 20130812
  Transmission Date: 20140515
  Serious: Yes (Hospitalization)
  Sender: FDA-Public Use
  Company Number: US-GILEAD-2013-0078834

PATIENT
  Sex: Female

DRUGS (2)
  1. LETAIRIS [Suspect]
     Indication: PULMONARY HYPERTENSION
     Dosage: 5 MG, QD
     Route: 048
     Dates: start: 20111101
  2. LETAIRIS [Suspect]
     Indication: TOBACCO USER

REACTIONS (4)
  - Cystitis [Unknown]
  - Diagnostic procedure [Recovered/Resolved]
  - Dizziness [Unknown]
  - Anaemia [Unknown]
